FAERS Safety Report 5318000-6 (Version None)
Quarter: 2007Q2

REPORT INFORMATION
  Report Type: 
  Country: None (occurrence: None)
  Receive Date: 20070507
  Receipt Date: 20070504
  Transmission Date: 20071010
  Serious: Yes (Other)
  Sender: FDA-Public Use
  Company Number: IT-BRISTOL-MYERS SQUIBB COMPANY-13770276

PATIENT

DRUGS (4)
  1. HYDROXYUREA [Suspect]
     Indication: THALASSAEMIA BETA
  2. FOLIC ACID [Suspect]
     Indication: THALASSAEMIA BETA
  3. DEFEROXAMINE MESYLATE [Suspect]
     Indication: THALASSAEMIA BETA
  4. VITAMIN E [Suspect]
     Indication: THALASSAEMIA BETA

REACTIONS (3)
  - DRUG INEFFECTIVE [None]
  - PYREXIA [None]
  - SERUM FERRITIN INCREASED [None]
